FAERS Safety Report 8606773 (Version 2)
Quarter: 2013Q3

REPORT INFORMATION
  Report Type: Spontaneous
  Country: US (occurrence: US)
  Receive Date: 20120611
  Receipt Date: 20130726
  Transmission Date: 20140515
  Serious: No
  Sender: FDA-Public Use
  Company Number: US-ASTRAZENECA-2012SE36203

PATIENT
  Age: 36 Year
  Sex: Female
  Weight: 56.7 kg

DRUGS (5)
  1. NEXIUM [Suspect]
     Indication: GASTROOESOPHAGEAL REFLUX DISEASE
     Dosage: DAILY
     Route: 048
     Dates: start: 1995, end: 2008
  2. PRILOSEC [Suspect]
     Indication: GASTROOESOPHAGEAL REFLUX DISEASE
     Route: 048
     Dates: start: 1995, end: 2008
  3. PREVACID [Concomitant]
     Indication: GASTROOESOPHAGEAL REFLUX DISEASE
     Dates: start: 1995, end: 2008
  4. TUMS [Concomitant]
  5. ANTIDEPRESSANTS [Concomitant]

REACTIONS (5)
  - Bone density decreased [Unknown]
  - Osteoporosis [Unknown]
  - Bone disorder [Unknown]
  - Osteopenia [Unknown]
  - Depression [Unknown]
